FAERS Safety Report 14215844 (Version 1)
Quarter: 2017Q4

REPORT INFORMATION
  Report Type: Spontaneous
  Country: US (occurrence: US)
  Receive Date: 20171122
  Receipt Date: 20171122
  Transmission Date: 20180321
  Serious: Yes (Other)
  Sender: FDA-Public Use
  Company Number: US-NOVOPROD-573055

PATIENT
  Age: 53 Year
  Sex: Female
  Weight: 72.56 kg

DRUGS (2)
  1. TRESIBA [Suspect]
     Active Substance: INSULIN DEGLUDEC
     Dosage: 7 U, BID
     Route: 058
     Dates: end: 201709
  2. TRESIBA [Suspect]
     Active Substance: INSULIN DEGLUDEC
     Indication: TYPE 1 DIABETES MELLITUS
     Dosage: 21 U, QD
     Route: 058
     Dates: start: 2017

REACTIONS (6)
  - Ear infection [Recovered/Resolved]
  - Pharyngitis streptococcal [Unknown]
  - Head discomfort [Recovered/Resolved]
  - Hypersensitivity [Recovered/Resolved]
  - Deafness [Not Recovered/Not Resolved]
  - Tympanic membrane perforation [Not Recovered/Not Resolved]

NARRATIVE: CASE EVENT DATE: 2017
